FAERS Safety Report 8333016-3 (Version None)
Quarter: 2012Q2

REPORT INFORMATION
  Report Type: 
  Country: None (occurrence: None)
  Receive Date: 20120503
  Receipt Date: 20120424
  Transmission Date: 20120825
  Serious: Yes (Other)
  Sender: FDA-Public Use
  Company Number: PHHY2012CA036369

PATIENT
  Sex: Female

DRUGS (4)
  1. CAPECITABINE [Concomitant]
  2. FEMARA [Suspect]
  3. TAMOXIFEN CITRATE [Concomitant]
  4. EXEMESTANE [Concomitant]

REACTIONS (2)
  - BREAST CANCER [None]
  - CONCOMITANT DISEASE PROGRESSION [None]
